FAERS Safety Report 4808428-2 (Version None)
Quarter: 2005Q4

REPORT INFORMATION
  Report Type: 
  Country: None (occurrence: None)
  Receive Date: 20051020
  Receipt Date: 20051014
  Transmission Date: 20060501
  Serious: Yes (Hospitalization)
  Sender: FDA-Public Use
  Company Number: FRWYE057914OCT05

PATIENT
  Age: 93 Year
  Sex: Female

DRUGS (5)
  1. EFEXOR LP (VENLAFAXINE HYDROCHLORIDE, CAPSULE, EXTENDED RELEASE) [Suspect]
     Indication: DEPRESSION
     Dosage: 37.5 MG 1X PER 1 DAY ORAL
     Route: 048
     Dates: start: 20030801, end: 20050713
  2. MEPRONIZINE (ACEPROMETAZINE/MEPROBAMATE, , 0) [Suspect]
     Dosage: 410 MG DAILY ORAL
     Route: 048
  3. DILTIAZEM HYDROCHLORIDE [Suspect]
     Dosage: 200 MG 1X PER 1 DAY ORAL
     Route: 048
  4. TRINITRINE (GLYCERYL TRINITRATE, ,0) [Suspect]
     Dosage: 0N DEMAND ORAL
     Route: 048
  5. XANAX [Suspect]
     Dosage: 0.5 MG 2X PER 1 DAY ORAL
     Route: 048

REACTIONS (10)
  - ATRIOVENTRICULAR BLOCK FIRST DEGREE [None]
  - BLOOD POTASSIUM INCREASED [None]
  - CREATININE RENAL CLEARANCE DECREASED [None]
  - FALL [None]
  - GENERAL PHYSICAL HEALTH DETERIORATION [None]
  - HEAD INJURY [None]
  - HEART RATE DECREASED [None]
  - HYPONATRAEMIA [None]
  - NODAL RHYTHM [None]
  - SUBDURAL HAEMORRHAGE [None]
